FAERS Safety Report 7934163 (Version 5)
Quarter: 2014Q2

REPORT INFORMATION
  Report Type: Report from Study
  Country: JP (occurrence: JP)
  Receive Date: 20110506
  Receipt Date: 20140602
  Transmission Date: 20141212
  Serious: Yes (Hospitalization, Other)
  Sender: FDA-Public Use
  Company Number: PHHY2008JP11869

PATIENT
  Sex: Female

DRUGS (35)
  1. CERTICAN [Suspect]
     Indication: HEART TRANSPLANT
     Dosage: 0.5 MG, QD
     Route: 048
     Dates: start: 20050221, end: 20050227
  2. CERTICAN [Suspect]
     Dosage: 1 MG, QD
     Route: 048
     Dates: start: 20050228, end: 20050303
  3. CERTICAN [Suspect]
     Dosage: 1.5 MG, UNK
     Route: 048
     Dates: start: 20050304, end: 20050516
  4. CERTICAN [Suspect]
     Dosage: 1.5 MG, UNK
     Route: 048
     Dates: start: 20070220, end: 20070805
  5. CERTICAN [Suspect]
     Dosage: 1 MG, UNK
     Route: 048
     Dates: start: 20070806, end: 20091208
  6. CERTICAN [Suspect]
     Dosage: 1.25 MG, UNK
     Route: 048
     Dates: start: 20091208, end: 20110220
  7. MYCOPHENOLATE MOFETIL [Suspect]
     Indication: HEART TRANSPLANT
     Dosage: 500 MG, UNK
     Route: 048
     Dates: start: 20090221, end: 20100107
  8. MYCOPHENOLATE MOFETIL [Suspect]
     Dosage: 1000 MG, UNK
     Route: 048
     Dates: start: 20100108, end: 20100220
  9. MYCOPHENOLATE MOFETIL [Suspect]
     Dosage: 500 MG, UNK
     Route: 048
     Dates: start: 20100221
  10. PROGRAF [Suspect]
     Indication: HEART TRANSPLANT
     Dosage: 3.6 MG, UNK
     Route: 048
     Dates: end: 20050227
  11. PROGRAF [Suspect]
     Dosage: 2 MG, UNK
     Route: 048
     Dates: start: 20050228, end: 20050313
  12. PROGRAF [Suspect]
     Dosage: 2.8 MG, UNK
     Route: 048
     Dates: start: 20050314
  13. PROGRAF [Suspect]
     Dosage: 2 MG, UNK
     Route: 048
     Dates: start: 20050220, end: 20070607
  14. PROGRAF [Suspect]
     Dosage: 2.6 MG, UNK
     Route: 048
     Dates: start: 20070608, end: 20070911
  15. PROGRAF [Suspect]
     Dosage: 1.2 MG, UNK
     Route: 048
     Dates: start: 20070912, end: 20071016
  16. CELLCEPT [Suspect]
     Indication: HEART TRANSPLANT
     Dosage: 125 MG, UNK
     Route: 048
     Dates: start: 20040802
  17. CELLCEPT [Suspect]
     Dosage: 250 MG, UNK
     Route: 048
     Dates: start: 20070220
  18. CELLCEPT [Suspect]
     Dosage: 500 MG, UNK
     Dates: start: 20080221
  19. PREDONINE [Suspect]
     Indication: HEART TRANSPLANT
     Dosage: 2 MG, UNK
     Route: 048
     Dates: start: 200105
  20. PREDONINE [Suspect]
     Dosage: 1 MG, UNK
     Route: 048
     Dates: start: 20070220
  21. PREDONINE [Suspect]
     Dosage: 5 MG, UNK
     Route: 048
     Dates: start: 20100121, end: 20100128
  22. PREDONINE [Suspect]
     Dosage: 7.5 MG, UNK
     Route: 048
     Dates: start: 20100128, end: 20100220
  23. PREDONINE [Suspect]
     Dosage: 5 MG, UNK
     Route: 048
     Dates: start: 20100420, end: 20101227
  24. PREDONINE [Suspect]
     Dosage: 2.5 MG, UNK
     Route: 048
     Dates: start: 20101228
  25. BAKTAR [Concomitant]
     Indication: ANTIFUNGAL PROPHYLAXIS
     Dosage: 1.5 G, UNK
     Route: 048
     Dates: start: 200105
  26. BAKTAR [Concomitant]
     Dosage: 1.5 G, UNK
     Route: 048
  27. BAKTAR [Concomitant]
     Dosage: 1.5 G, UNK
     Route: 048
  28. BAKTAR [Concomitant]
     Dosage: 1.5 G, UNK
     Route: 048
  29. RENIVACE [Concomitant]
     Indication: HYPERTENSION
     Dosage: 1.25 MG, UNK
     Route: 048
     Dates: start: 200105
  30. RENIVACE [Concomitant]
     Dosage: 1.25 MG, UNK
     Route: 048
  31. RENIVACE [Concomitant]
     Dosage: 1.25 MG, UNK
     Route: 048
  32. RITUXIMAB [Concomitant]
     Dosage: UNK
  33. GAMMA GLOBULIN [Concomitant]
     Dosage: UNK
  34. MEVALOTIN [Concomitant]
     Dosage: 30 MG, UNK
     Route: 048
     Dates: start: 20070720
  35. MEVALOTIN [Concomitant]
     Dosage: 5 MG, UNK
     Route: 048

REACTIONS (23)
  - Pneumonia [Recovered/Resolved]
  - Pyrexia [Unknown]
  - C-reactive protein increased [Recovered/Resolved]
  - White blood cell count increased [Recovered/Resolved]
  - Diarrhoea [Recovered/Resolved]
  - Vomiting [Recovered/Resolved]
  - Post transplant lymphoproliferative disorder [Recovered/Resolved]
  - Lymphadenopathy [Recovered/Resolved]
  - Abdominal pain [Unknown]
  - Influenza like illness [Unknown]
  - Bronchitis [Recovered/Resolved]
  - Cardiac hypertrophy [Recovering/Resolving]
  - Heart transplant rejection [Recovered/Resolved]
  - Brain natriuretic peptide increased [Recovering/Resolving]
  - Cardiomegaly [Unknown]
  - Pericardial effusion [Recovering/Resolving]
  - Myocardial oedema [Recovering/Resolving]
  - Upper respiratory tract inflammation [Recovered/Resolved]
  - Laryngeal neoplasm [Recovered/Resolved]
  - Laryngeal oedema [Unknown]
  - Obstructive airways disorder [Unknown]
  - Snoring [Unknown]
  - Hypercholesterolaemia [Recovered/Resolved]
